FAERS Safety Report 5213980-1 (Version None)
Quarter: 2007Q1

REPORT INFORMATION
  Report Type: 
  Country: None (occurrence: None)
  Receive Date: 20070122
  Receipt Date: 20070112
  Transmission Date: 20070707
  Serious: Yes (Hospitalization, Other)
  Sender: FDA-Public Use
  Company Number: US-JNJFOC-20070103608

PATIENT
  Age: 13 Year
  Sex: Female

DRUGS (6)
  1. FENTANYL TRANSDERMAL SYSTEM [Suspect]
     Indication: SUICIDE ATTEMPT
  2. OXYCONTIN [Suspect]
     Indication: SUICIDE ATTEMPT
  3. BENZODIAZEPINE [Suspect]
     Indication: DEPRESSION
  4. ACETAMINOPHEN [Concomitant]
     Indication: DRUG USE FOR UNKNOWN INDICATION
  5. SELECTIVE SEROTONIN REUPTAKE INHIBITORS [Concomitant]
  6. MORPHINE [Concomitant]
     Indication: DRUG USE FOR UNKNOWN INDICATION

REACTIONS (8)
  - ASTHENIA [None]
  - EUPHORIC MOOD [None]
  - INTENTIONAL DRUG MISUSE [None]
  - LOSS OF CONSCIOUSNESS [None]
  - PULSE ABSENT [None]
  - RESPIRATORY ARREST [None]
  - SOMNOLENCE [None]
  - SUICIDE ATTEMPT [None]
